FAERS Safety Report 23746991 (Version 1)
Quarter: 2024Q2

REPORT INFORMATION
  Report Type: Spontaneous
  Country: US (occurrence: US)
  Receive Date: 20240416
  Receipt Date: 20240416
  Transmission Date: 20240715
  Serious: Yes (Hospitalization, Other)
  Sender: FDA-Public Use
  Company Number: US-MLMSERVICE-20240326-4901470-1

PATIENT
  Sex: Male

DRUGS (3)
  1. LEVETIRACETAM [Suspect]
     Active Substance: LEVETIRACETAM
     Indication: Status epilepticus
     Dosage: TOTAL 60 MG/KG OF LEVETIRACETAM, PER STATUS ?EPILEPTICUS PROTOCOL
     Route: 065
  2. LAMOTRIGINE [Suspect]
     Active Substance: LAMOTRIGINE
     Indication: Status epilepticus
     Dosage: UNKNOWN
     Route: 065
  3. LORAZEPAM [Suspect]
     Active Substance: LORAZEPAM
     Indication: Status epilepticus
     Route: 065

REACTIONS (6)
  - Irritability [Unknown]
  - Acute kidney injury [Unknown]
  - Urate nephropathy [Unknown]
  - Drug ineffective [Unknown]
  - Urinary tract infection [Unknown]
  - Encephalopathy [Unknown]
